FAERS Safety Report 18272494 (Version 2)
Quarter: 2020Q3

REPORT INFORMATION
  Report Type: Report from Study
  Country: DE (occurrence: DE)
  Receive Date: 20200916
  Receipt Date: 20200918
  Transmission Date: 20201103
  Serious: Yes (Death, Other)
  Sender: FDA-Public Use
  Company Number: DE-GILEAD-2020-0448883

PATIENT
  Age: 69 Year
  Sex: Male
  Weight: 64 kg

DRUGS (3)
  1. RIBAVIRIN. [Suspect]
     Active Substance: RIBAVIRIN
     Indication: CHRONIC HEPATITIS C
     Dosage: 800 MG, QD
     Route: 048
     Dates: start: 20190912, end: 20191204
  2. SOFOSBUVIR W/VELPATASVIR [Suspect]
     Active Substance: SOFOSBUVIR\VELPATASVIR
     Indication: CHRONIC HEPATITIS C
     Dosage: 1 DOSAGE FORM, QD
     Route: 048
     Dates: start: 20190912, end: 20191204
  3. CANDESARTAN. [Concomitant]
     Active Substance: CANDESARTAN

REACTIONS (5)
  - Hepatocellular carcinoma [Fatal]
  - Abdominal discomfort [Recovered/Resolved]
  - Metastases to central nervous system [Fatal]
  - Metastases to liver [Fatal]
  - Diarrhoea [Recovered/Resolved]

NARRATIVE: CASE EVENT DATE: 20200101
